FAERS Safety Report 25444204 (Version 1)
Quarter: 2025Q2

REPORT INFORMATION
  Report Type: Spontaneous
  Country: US (occurrence: US)
  Receive Date: 20250617
  Receipt Date: 20250617
  Transmission Date: 20250716
  Serious: No
  Sender: UCB
  Company Number: US-UCBSA-2025021850

PATIENT
  Sex: Female

DRUGS (1)
  1. BIMZELX [Suspect]
     Active Substance: BIMEKIZUMAB-BKZX
     Indication: Hidradenitis
     Dosage: 320 MILLIGRAM, EV 2 WEEKS(QOW) (THEN 1 PEN EVERY 4 WEEKS THEREAFTER)
     Route: 058
     Dates: start: 202502

REACTIONS (7)
  - Acne [Unknown]
  - Rash [Unknown]
  - Fungal infection [Unknown]
  - Oral mucosal blistering [Unknown]
  - Glossodynia [Unknown]
  - Candida infection [Unknown]
  - Hidradenitis [Unknown]

NARRATIVE: CASE EVENT DATE: 20250101
